FAERS Safety Report 7646874-2 (Version None)
Quarter: 2011Q3

REPORT INFORMATION
  Report Type: 
  Country: None (occurrence: None)
  Receive Date: 20110729
  Receipt Date: 20110729
  Transmission Date: 20111222
  Serious: No
  Sender: FDA-Public Use
  Company Number: None

PATIENT
  Age: 51 Year
  Sex: Female
  Weight: 88.905 kg

DRUGS (2)
  1. SIMVASTATIN [Suspect]
  2. SIMVASTATIN [Suspect]

REACTIONS (3)
  - PAIN IN EXTREMITY [None]
  - BLOOD DISORDER [None]
  - GAIT DISTURBANCE [None]
